FAERS Safety Report 6758192-5 (Version None)
Quarter: 2010Q2

REPORT INFORMATION
  Report Type: 
  Country: None (occurrence: None)
  Receive Date: 20100524
  Receipt Date: 20100311
  Transmission Date: 20101027
  Serious: Yes (Hospitalization)
  Sender: FDA-Public Use
  Company Number: 008626

PATIENT
  Sex: Male
  Weight: 81.8 kg

DRUGS (8)
  1. CIMZIA [Suspect]
     Indication: CROHN'S DISEASE
     Dosage: (400 MG 1X/MONTH SUBCUTANEOUS)
     Route: 058
     Dates: start: 20100105
  2. ASACOL [Concomitant]
  3. PREDNISONE [Concomitant]
  4. AZATHIOPRINE [Concomitant]
  5. PRILOSEC [Concomitant]
  6. MULTIVITAMIN /01229101/ [Concomitant]
  7. FOLIC ACID [Concomitant]
  8. LOPERAMIDE [Concomitant]

REACTIONS (2)
  - INTESTINAL STENOSIS [None]
  - LIVER FUNCTION TEST ABNORMAL [None]
